FAERS Safety Report 13785978 (Version 1)
Quarter: 2017Q3

REPORT INFORMATION
  Report Type: Spontaneous
  Country: US (occurrence: US)
  Receive Date: 20170725
  Receipt Date: 20170725
  Transmission Date: 20171127
  Serious: Yes (Hospitalization)
  Sender: FDA-Public Use
  Company Number: None

PATIENT
  Age: 56 Year
  Sex: Female
  Weight: 72.4 kg

DRUGS (1)
  1. CISPLATIN. [Suspect]
     Active Substance: CISPLATIN
     Dates: end: 20170705

REACTIONS (7)
  - Oropharyngeal pain [None]
  - Mouth ulceration [None]
  - Hypophagia [None]
  - Urinary tract infection [None]
  - Mucosal inflammation [None]
  - White blood cell count increased [None]
  - Radiation skin injury [None]

NARRATIVE: CASE EVENT DATE: 20170710
